FAERS Safety Report 8969438 (Version 1)
Quarter: 2012Q4

REPORT INFORMATION
  Report Type: 
  Country: US (occurrence: US)
  Receive Date: 20121218
  Receipt Date: 20121218
  Transmission Date: 20130627
  Serious: Yes (Other)
  Sender: FDA-Public Use
  Company Number: US-BRISTOL-MYERS SQUIBB COMPANY-16660276

PATIENT
  Age: 68 Year
  Sex: Female

DRUGS (9)
  1. ABILIFY [Suspect]
     Indication: DEPRESSION
     Route: 048
     Dates: start: 20120403, end: 20120525
  2. ZOLOFT [Concomitant]
     Route: 048
  3. DUONEB [Concomitant]
  4. BUMEX [Concomitant]
     Route: 048
  5. COMBIVENT [Concomitant]
     Dosage: 1df=2puffs
1 in 4hrs
  6. LORTAB [Concomitant]
     Dosage: 1df=75/500
1 in 6hrs
  7. PROPRANOLOL [Concomitant]
  8. SPIRIVA [Concomitant]
     Route: 055
  9. COUMADIN TABS [Concomitant]

REACTIONS (1)
  - Convulsion [Recovered/Resolved]
